FAERS Safety Report 16660407 (Version 1)
Quarter: 2019Q3

REPORT INFORMATION
  Report Type: Spontaneous
  Country: US (occurrence: US)
  Receive Date: 20190618
  Receipt Date: 20190618
  Transmission Date: 20191004
  Serious: Yes (Life-Threatening, Hospitalization)
  Sender: FDA-Public Use
  Company Number: None

PATIENT
  Age: 29 Year
  Sex: Male
  Weight: 83.6 kg

DRUGS (1)
  1. LAMOTRIGINE 300MG 1 PO DAILY [Suspect]
     Active Substance: LAMOTRIGINE
     Indication: EPILEPSY
     Route: 048
     Dates: start: 20170101, end: 20170127

REACTIONS (3)
  - Cardiac arrest [None]
  - Respiratory arrest [None]
  - Seizure [None]

NARRATIVE: CASE EVENT DATE: 20170127
